FAERS Safety Report 6875651-5 (Version None)
Quarter: 2010Q3

REPORT INFORMATION
  Report Type: 
  Country: None (occurrence: None)
  Receive Date: 20100727
  Receipt Date: 20100720
  Transmission Date: 20110219
  Serious: Yes (Other)
  Sender: FDA-Public Use
  Company Number: AU-ASTRAZENECA-2010SE34376

PATIENT
  Age: 27541 Day
  Sex: Male

DRUGS (11)
  1. FENTANYL [Suspect]
     Dates: start: 20100615
  2. METOPROLOL SUCCINATE [Suspect]
     Route: 048
     Dates: start: 20100615
  3. PROPOFOL [Suspect]
     Route: 042
     Dates: start: 20100615
  4. CEFAZOLIN SODIUM [Suspect]
     Dates: start: 20100615
  5. HEPARIN CALCIUM [Suspect]
     Dosage: 25000 INT ONE TIME
     Dates: start: 20100615
  6. MIDAZOLAM HCL [Suspect]
     Dates: start: 20100615
  7. NORADRENALIN [Suspect]
     Dates: start: 20100615
  8. PANCURONIUM BROMIDE [Suspect]
     Dates: start: 20100615
  9. PROTAMINE SULFATE [Suspect]
     Dates: start: 20100615
  10. THIOPENTAL SODIUM [Suspect]
     Dates: start: 20100615
  11. TRANEXAMIC ACID [Suspect]
     Dates: start: 20100615

REACTIONS (1)
  - CONVULSION [None]
